FAERS Safety Report 6042224-6 (Version None)
Quarter: 2009Q1

REPORT INFORMATION
  Report Type: 
  Country: None (occurrence: None)
  Receive Date: 20090116
  Receipt Date: 20090115
  Transmission Date: 20090719
  Serious: Yes (Life-Threatening)
  Sender: FDA-Public Use
  Company Number: CA-ASTRAZENECA-2009UW01278

PATIENT
  Age: 51 Year
  Sex: Female
  Weight: 73 kg

DRUGS (3)
  1. CRESTOR [Suspect]
     Route: 048
  2. ASPIRIN [Concomitant]
  3. LOVAZA [Concomitant]

REACTIONS (9)
  - AGITATION [None]
  - DIZZINESS [None]
  - EMOTIONAL DISTRESS [None]
  - HYPOACUSIS [None]
  - HYPOAESTHESIA [None]
  - MYALGIA [None]
  - NAUSEA [None]
  - VERTIGO [None]
  - VOMITING [None]
